FAERS Safety Report 25768072 (Version 2)
Quarter: 2025Q4

REPORT INFORMATION
  Report Type: Spontaneous
  Country: JP (occurrence: JP)
  Receive Date: 20250905
  Receipt Date: 20251018
  Transmission Date: 20260117
  Serious: Yes (Death, Hospitalization)
  Sender: TAIHO ONCOLOGY INC
  Company Number: JP-TAIHOP-2025-005951

PATIENT
  Age: 9 Decade
  Sex: Female

DRUGS (1)
  1. LONSURF [Suspect]
     Active Substance: TIPIRACIL HYDROCHLORIDE\TRIFLURIDINE
     Indication: Colon cancer
     Dosage: DOSE, FREQUENCY, AND STRENGTH UNKNOWN.?CYCLE: 1
     Route: 048
     Dates: start: 20250520, end: 20250713

REACTIONS (4)
  - Disease progression [Fatal]
  - Nausea [Recovering/Resolving]
  - Diarrhoea [Recovered/Resolved]
  - Off label use [Unknown]

NARRATIVE: CASE EVENT DATE: 20250713
